FAERS Safety Report 21255038 (Version 7)
Quarter: 2023Q1

REPORT INFORMATION
  Report Type: Report from Study
  Country: US (occurrence: US)
  Receive Date: 20220825
  Receipt Date: 20230228
  Transmission Date: 20230417
  Serious: No
  Sender: FDA-Public Use
  Company Number: US-NOVARTISTESTPH-NVSC2022US190897

PATIENT
  Sex: Male
  Weight: 89.35 kg

DRUGS (1)
  1. ENTRESTO [Suspect]
     Active Substance: SACUBITRIL\VALSARTAN
     Indication: Product used for unknown indication
     Dosage: 1 DOSAGE FORM, BID (24/26 MG)
     Route: 048
     Dates: start: 202207

REACTIONS (10)
  - Blood pressure abnormal [Unknown]
  - Visual impairment [Unknown]
  - Ill-defined disorder [Unknown]
  - Dyspnoea [Recovering/Resolving]
  - Weight decreased [Unknown]
  - Eye pain [Unknown]
  - Stress [Unknown]
  - Cardiac disorder [Unknown]
  - Fatigue [Unknown]
  - Asthenia [Unknown]
